FAERS Safety Report 7279206-2 (Version None)
Quarter: 2011Q1

REPORT INFORMATION
  Report Type: 
  Country: None (occurrence: None)
  Receive Date: 20110207
  Receipt Date: 20110127
  Transmission Date: 20110831
  Serious: Yes (Other)
  Sender: FDA-Public Use
  Company Number: ES-GENENTECH-311914

PATIENT
  Age: 83 Year
  Sex: Male

DRUGS (10)
  1. MABTHERA [Suspect]
     Indication: NON-HODGKIN'S LYMPHOMA
     Dosage: UNK
     Route: 042
     Dates: start: 20100701, end: 20100801
  2. MABTHERA [Suspect]
     Dosage: UNK
     Route: 042
     Dates: start: 20101101, end: 20101201
  3. VINCRISTINE [Suspect]
     Dosage: UNK
     Route: 042
     Dates: start: 20100901, end: 20101001
  4. CYCLOPHOSPHAMIDE [Suspect]
     Indication: NON-HODGKIN'S LYMPHOMA
     Dosage: UNK
     Route: 042
     Dates: start: 20100701, end: 20100801
  5. CYCLOPHOSPHAMIDE [Suspect]
     Dosage: UNK
     Route: 042
     Dates: start: 20100901, end: 20101001
  6. DOXORUBICIN [Suspect]
     Indication: NON-HODGKIN'S LYMPHOMA
     Dosage: UNK
     Route: 042
     Dates: start: 20100901, end: 20101001
  7. PREDNISONE [Suspect]
     Indication: NON-HODGKIN'S LYMPHOMA
     Dosage: UNK
     Route: 042
     Dates: start: 20100701, end: 20100801
  8. MABTHERA [Suspect]
     Dosage: UNK
     Route: 042
     Dates: start: 20100901, end: 20101001
  9. VINCRISTINE [Suspect]
     Indication: NON-HODGKIN'S LYMPHOMA
     Dosage: UNK
     Route: 042
     Dates: start: 20100701, end: 20100801
  10. PREDNISONE [Suspect]
     Dosage: UNK
     Route: 042
     Dates: start: 20100901, end: 20101001

REACTIONS (3)
  - VOCAL CORD PARESIS [None]
  - DIPLOPIA [None]
  - NERVOUS SYSTEM DISORDER [None]
